FAERS Safety Report 23020496 (Version 1)
Quarter: 2023Q4

REPORT INFORMATION
  Report Type: Spontaneous
  Country: US (occurrence: None)
  Receive Date: 20231002
  Receipt Date: 20231002
  Transmission Date: 20240109
  Serious: Yes (Life-Threatening, Hospitalization, Disabling, Other)
  Sender: FDA-Public Use
  Company Number: None

PATIENT
  Age: 20 Year
  Sex: Female
  Weight: 65.25 kg

DRUGS (1)
  1. CIPROFLOXACIN [Suspect]
     Active Substance: CIPROFLOXACIN
     Indication: Urinary tract infection
     Dates: start: 20151115, end: 20151128

REACTIONS (12)
  - Insomnia [None]
  - Tremor [None]
  - Hallucination [None]
  - Anxiety [None]
  - Nausea [None]
  - Tension headache [None]
  - Abdominal pain upper [None]
  - Suicidal behaviour [None]
  - Therapy cessation [None]
  - Gluten sensitivity [None]
  - Educational problem [None]
  - Impaired quality of life [None]

NARRATIVE: CASE EVENT DATE: 20151115
